FAERS Safety Report 5586974-4 (Version None)
Quarter: 2008Q1

REPORT INFORMATION
  Report Type: 
  Country: None (occurrence: None)
  Receive Date: 20080110
  Receipt Date: 20080104
  Transmission Date: 20080703
  Serious: Yes (Death)
  Sender: FDA-Public Use
  Company Number: US-JNJFOC-20080101303

PATIENT
  Age: 15 Year
  Sex: Female

DRUGS (5)
  1. TOPIRAMATE [Suspect]
     Indication: SUICIDE ATTEMPT
     Route: 048
  2. BUPROPION HCL [Suspect]
     Indication: SUICIDE ATTEMPT
     Route: 048
  3. CLONIDINE [Suspect]
     Indication: SUICIDE ATTEMPT
     Route: 048
  4. FLUOXETINE HCL [Suspect]
     Indication: SUICIDE ATTEMPT
     Route: 048
  5. SSRI [Suspect]
     Indication: SUICIDE ATTEMPT
     Route: 048

REACTIONS (2)
  - COMPLETED SUICIDE [None]
  - DRUG TOXICITY [None]
